FAERS Safety Report 8825247 (Version 1)
Quarter: 2012Q4

REPORT INFORMATION
  Report Type: 
  Country: US (occurrence: US)
  Receive Date: 20121004
  Receipt Date: 20121004
  Transmission Date: 20130627
  Serious: Yes (Death, Hospitalization, Other)
  Sender: FDA-Public Use
  Company Number: US-ROCHE-1133455

PATIENT
  Sex: Female

DRUGS (18)
  1. RITUXAN [Suspect]
     Indication: DIFFUSE LARGE B-CELL LYMPHOMA
     Route: 065
  2. TEQUIN [Suspect]
     Indication: PRODUCT USED FOR UNKNOWN INDICATION
  3. MESNA [Concomitant]
  4. ETOPOSIDE [Concomitant]
  5. IFOSFAMIDE [Concomitant]
  6. MITOXANTRONE [Concomitant]
  7. CYTARABINE [Concomitant]
  8. CISPLATIN [Concomitant]
  9. METHYLPREDNISOLONE [Concomitant]
  10. PREMPRO [Concomitant]
  11. OS-CAL [Concomitant]
  12. DIGOXIN [Concomitant]
  13. NICOTINE PATCH [Concomitant]
  14. TAXOL [Concomitant]
     Route: 065
  15. TOPOTECAN [Concomitant]
     Dosage: 1.7 mg
     Route: 042
  16. TOPOTECAN [Concomitant]
     Dosage: 2.5 mg
     Route: 065
  17. ACYCLOVIR [Concomitant]
  18. BACTRIM [Concomitant]

REACTIONS (9)
  - Death [Fatal]
  - Pneumonia [Recovering/Resolving]
  - Neutropenia [Unknown]
  - Lymphadenopathy [Unknown]
  - Herpes zoster [Unknown]
  - Productive cough [Unknown]
  - Fatigue [Unknown]
  - Hypoaesthesia [Unknown]
  - Rash pruritic [Unknown]
